FAERS Safety Report 4857764-2 (Version None)
Quarter: 2005Q4

REPORT INFORMATION
  Report Type: 
  Country: None (occurrence: None)
  Receive Date: 20051219
  Receipt Date: 20050404
  Transmission Date: 20060501
  Serious: No
  Sender: FDA-Public Use
  Company Number: US-GLAXOSMITHKLINE-A0552486A

PATIENT
  Age: 63 Year
  Sex: Male

DRUGS (4)
  1. NICODERM CQ [Suspect]
  2. NICODERM CQ [Suspect]
  3. NICORETTE (ORANGE) [Suspect]
  4. NICORETTE [Concomitant]

REACTIONS (3)
  - APPLICATION SITE IRRITATION [None]
  - APPLICATION SITE PRURITUS [None]
  - INTENTIONAL DRUG MISUSE [None]
